FAERS Safety Report 8157337 (Version 3)
Quarter: 2014Q1

REPORT INFORMATION
  Report Type: Report from Study
  Country: US (occurrence: US)
  Receive Date: 20110927
  Receipt Date: 20140310
  Transmission Date: 20141002
  Serious: Yes (Hospitalization, Other)
  Sender: FDA-Public Use
  Company Number: US-PFIZER INC-2011169440

PATIENT
  Age: 54 Year
  Sex: Female
  Weight: 78.91 kg

DRUGS (7)
  1. DILANTIN [Suspect]
     Indication: GRAND MAL CONVULSION
     Dosage: UNK
     Route: 048
     Dates: start: 1964
  2. DILANTIN [Interacting]
     Indication: PETIT MAL EPILEPSY
     Dosage: (160MG IN THE MORNING AND 200MG IN THE NIGHT), 2X/DAY
  3. DILANTIN [Interacting]
     Indication: CONVULSION
  4. CIPROFLOXACIN HCL [Interacting]
     Indication: CYSTITIS
     Dosage: 280 MG, 2X/DAY
  5. SULFAMETHOXAZOLE W/TRIMETHOPRIM [Interacting]
     Indication: CYSTITIS
     Dosage: UNK
  6. KEPPRA [Suspect]
     Indication: CONVULSION
     Dosage: 500 MG, 2X/DAY
  7. PHENOBARBITAL [Suspect]
     Indication: CONVULSION
     Dosage: 90 MG, 1X/DAY

REACTIONS (4)
  - Drug interaction [Unknown]
  - Drug ineffective [Recovering/Resolving]
  - Feeling abnormal [Unknown]
  - Cystitis [Recovered/Resolved]
